FAERS Safety Report 10228974 (Version 2)
Quarter: 2014Q3

REPORT INFORMATION
  Report Type: Spontaneous
  Country: JP (occurrence: JP)
  Receive Date: 20140610
  Receipt Date: 20140709
  Transmission Date: 20150326
  Serious: Yes (Death, Hospitalization)
  Sender: FDA-Public Use
  Company Number: JP-GLAXOSMITHKLINE-B1001113A

PATIENT
  Age: 55 Year
  Sex: Male

DRUGS (2)
  1. VOTRIENT [Suspect]
     Active Substance: PAZOPANIB HYDROCHLORIDE
     Indication: SOFT TISSUE SARCOMA
     Dosage: 800MG PER DAY
     Route: 048
     Dates: start: 201402, end: 201405
  2. FAMVIR [Suspect]
     Active Substance: FAMCICLOVIR
     Indication: HERPES ZOSTER
     Route: 048
     Dates: start: 201405

REACTIONS (10)
  - Depressed level of consciousness [Unknown]
  - Headache [Unknown]
  - Cerebellar haemorrhage [Fatal]
  - Depressed level of consciousness [Unknown]
  - Brain scan abnormal [Unknown]
  - Convulsion [Unknown]
  - Convulsion [Unknown]
  - Depressed level of consciousness [Recovered/Resolved]
  - Pneumonia [Fatal]
  - Herpes zoster [Unknown]

NARRATIVE: CASE EVENT DATE: 20140422
